FAERS Safety Report 9761172 (Version 1)
Quarter: 2013Q4

REPORT INFORMATION
  Report Type: Spontaneous
  Country: US (occurrence: US)
  Receive Date: 20131216
  Receipt Date: 20131216
  Transmission Date: 20140711
  Serious: No
  Sender: FDA-Public Use
  Company Number: US-BIOGENIDEC-2013BI109075

PATIENT
  Age: 58 Year
  Sex: Female

DRUGS (7)
  1. TECFIDERA [Suspect]
     Indication: MULTIPLE SCLEROSIS
     Route: 048
     Dates: start: 201306
  2. FISH OIL [Concomitant]
  3. AMBIEN [Concomitant]
  4. SIMVASTATIN [Concomitant]
  5. CALTRATE [Concomitant]
  6. CLONAZEPAM [Concomitant]
  7. NITROQUICK [Concomitant]

REACTIONS (8)
  - Fatigue [Unknown]
  - Decreased appetite [Unknown]
  - Blood urine present [Unknown]
  - Cystitis [Unknown]
  - Cholelithiasis [Unknown]
  - Pancreatic calcification [Unknown]
  - Abdominal pain upper [Unknown]
  - Nausea [Unknown]
